FAERS Safety Report 5717126-2 (Version None)
Quarter: 2008Q2

REPORT INFORMATION
  Report Type: 
  Country: None (occurrence: None)
  Receive Date: 20080423
  Receipt Date: 20080408
  Transmission Date: 20081010
  Serious: Yes (Other)
  Sender: FDA-Public Use
  Company Number: US-1165830

PATIENT
  Age: 82 Year
  Sex: Female

DRUGS (3)
  1. NEVANAC [Suspect]
     Indication: MACULAR OEDEMA
     Dosage: 3 X DAILY OPHTHALMIC
     Route: 047
  2. TRAVATAN [Concomitant]
  3. DORZOLAMIDE [Concomitant]

REACTIONS (1)
  - ULCERATIVE KERATITIS [None]
